FAERS Safety Report 5959217-7 (Version None)
Quarter: 2008Q4

REPORT INFORMATION
  Report Type: 
  Country: None (occurrence: None)
  Receive Date: 20081120
  Receipt Date: 20080718
  Transmission Date: 20090506
  Serious: No
  Sender: FDA-Public Use
  Company Number: A0738455A

PATIENT
  Age: 73 Year
  Sex: Female

DRUGS (4)
  1. WELLBUTRIN SR [Suspect]
     Indication: DEPRESSION
     Dosage: 450MG PER DAY
     Route: 048
     Dates: start: 20080629, end: 20080703
  2. NORVASC [Concomitant]
  3. SYNTHROID [Concomitant]
  4. PROTONIX [Concomitant]

REACTIONS (6)
  - ASTHENIA [None]
  - CRYING [None]
  - DRY MOUTH [None]
  - MYALGIA [None]
  - PAIN [None]
  - TREMOR [None]
